FAERS Safety Report 9524419 (Version 1)
Quarter: 2013Q3

REPORT INFORMATION
  Report Type: Spontaneous
  Country: GB (occurrence: None)
  Receive Date: 20130912
  Receipt Date: 20130912
  Transmission Date: 20140515
  Serious: Yes (Hospitalization)
  Sender: FDA-Public Use
  Company Number: AUR-APL-2013-07554

PATIENT
  Sex: Male

DRUGS (6)
  1. SIMVASTATIN [Suspect]
     Indication: PRODUCT USED FOR UNKNOWN INDICATION
     Dosage: ONCE AT NIGHT
  2. IMUVAC [Suspect]
     Indication: INFLUENZA IMMUNISATION
  3. CETIRIZINE (CETIRIZINE) [Concomitant]
  4. DIGOXIN (DIGOXIN) [Concomitant]
  5. FUROSEMIDE )FUROSEMIDE) [Concomitant]
  6. WARFARIN (WARFARIN) [Concomitant]

REACTIONS (10)
  - Rhabdomyolysis [None]
  - Renal failure acute [None]
  - Pneumonia [None]
  - Multi-organ failure [None]
  - Purpura [None]
  - Hypotension [None]
  - Platelet count decreased [None]
  - Prothrombin time prolonged [None]
  - Activated partial thromboplastin time prolonged [None]
  - Haemofiltration [None]
